FAERS Safety Report 10220604 (Version 2)
Quarter: 2016Q4

REPORT INFORMATION
  Report Type: Spontaneous
  Country: PT (occurrence: PT)
  Receive Date: 20140606
  Receipt Date: 20161229
  Transmission Date: 20170206
  Serious: Yes (Hospitalization, Other)
  Sender: FDA-Public Use
  Company Number: PT-TEVA-485684ISR

PATIENT
  Age: 70 Year
  Sex: Male

DRUGS (12)
  1. RAMIPRIL. [Concomitant]
     Active Substance: RAMIPRIL
  2. CARVEDILOL. [Concomitant]
     Active Substance: CARVEDILOL
  3. RAMIPRIL. [Concomitant]
     Active Substance: RAMIPRIL
  4. RAMIPRIL. [Concomitant]
     Active Substance: RAMIPRIL
  5. INDAPAMIDE. [Concomitant]
     Active Substance: INDAPAMIDE
  6. TICLOPIDINE [Suspect]
     Active Substance: TICLOPIDINE
     Route: 048
  7. CLOPIDOGREL AUROBINDO 75 MG, FILM-COATED TABLET [Suspect]
     Active Substance: CLOPIDOGREL BISULFATE
     Dosage: 75 MILLIGRAM DAILY;
     Route: 048
  8. RAMIPRIL. [Concomitant]
     Active Substance: RAMIPRIL
  9. RAMIPRIL. [Concomitant]
     Active Substance: RAMIPRIL
  10. SIMVASTATIN. [Concomitant]
     Active Substance: SIMVASTATIN
  11. ACETYLSALICYLIC ACID [Concomitant]
     Active Substance: ASPIRIN
  12. RAMIPRIL. [Concomitant]
     Active Substance: RAMIPRIL

REACTIONS (8)
  - Lip swelling [Recovered/Resolved]
  - Peripheral swelling [Recovered/Resolved]
  - Rash erythematous [Recovered/Resolved]
  - Skin lesion [Recovered/Resolved]
  - Arthralgia [Recovered/Resolved]
  - Oedema peripheral [Unknown]
  - Gastrointestinal disorder [Recovered/Resolved]
  - Type IV hypersensitivity reaction [Unknown]
